FAERS Safety Report 8392792-4 (Version None)
Quarter: 2012Q1

REPORT INFORMATION
  Report Type: 
  Country: None (occurrence: None)
  Receive Date: 20120323
  Receipt Date: 20111215
  Transmission Date: 20120608
  Serious: Yes (Hospitalization, Disabling)
  Sender: FDA-Public Use
  Company Number: 163-21880-11031475

PATIENT
  Age: 69 Year
  Sex: Male

DRUGS (4)
  1. REVLIMID [Suspect]
     Indication: MULTIPLE MYELOMA
     Dosage: 20 MG, 2 IN 1 D, PO 15 MG, DAILY X 21 DAYS, PO 20 MG, 21 DAYS ON, 7 DAYS OFF, PO
     Route: 048
     Dates: start: 20100301, end: 20110421
  2. REVLIMID [Suspect]
     Indication: MULTIPLE MYELOMA
     Dosage: 20 MG, 2 IN 1 D, PO 15 MG, DAILY X 21 DAYS, PO 20 MG, 21 DAYS ON, 7 DAYS OFF, PO
     Route: 048
     Dates: start: 20101201
  3. REVLIMID [Suspect]
     Indication: MULTIPLE MYELOMA
     Dosage: 20 MG, 2 IN 1 D, PO 15 MG, DAILY X 21 DAYS, PO 20 MG, 21 DAYS ON, 7 DAYS OFF, PO
     Route: 048
     Dates: start: 20101001
  4. STEROIDS (CORTICOSTEROIDS) [Concomitant]

REACTIONS (6)
  - NO THERAPEUTIC RESPONSE [None]
  - PNEUMONIA [None]
  - DEPRESSION [None]
  - DECREASED APPETITE [None]
  - WEIGHT DECREASED [None]
  - DISEASE PROGRESSION [None]
